FAERS Safety Report 14282047 (Version 28)
Quarter: 2019Q1

REPORT INFORMATION
  Report Type: Spontaneous
  Country: FR (occurrence: FR)
  Receive Date: 20171213
  Receipt Date: 20190212
  Transmission Date: 20190417
  Serious: Yes (Hospitalization, Other)
  Sender: FDA-Public Use
  Company Number: FR-PFIZER INC-2017524123

PATIENT
  Age: 75 Year
  Sex: Male
  Weight: 88 kg

DRUGS (39)
  1. AMLODIPINE BESILATE [Suspect]
     Active Substance: AMLODIPINE BESYLATE
     Indication: HYPERTENSION
     Dosage: 10 MG, 1X/DAY
     Route: 048
     Dates: start: 20170825, end: 20170927
  2. MIRTAZAPINE. [Suspect]
     Active Substance: MIRTAZAPINE
     Indication: DEPRESSIVE SYMPTOM
     Dosage: 15 MG, 1X/DAY
     Route: 048
     Dates: start: 20170910
  3. NEFOPAM [Suspect]
     Active Substance: NEFOPAM
     Dosage: 3 UG, 1X/DAY
     Route: 048
  4. DIAZEPAM. [Suspect]
     Active Substance: DIAZEPAM
     Dosage: 30 MG, 1X/DAY/QD
     Route: 048
     Dates: start: 20170101, end: 20170927
  5. ALPRAZOLAM. [Suspect]
     Active Substance: ALPRAZOLAM
     Indication: DEPRESSIVE SYMPTOM
     Dosage: 0.25 MG, 3X/DAY
     Route: 048
     Dates: start: 20170928
  6. DAFALGAN [Suspect]
     Active Substance: ACETAMINOPHEN
     Indication: PAIN
     Dosage: 1000 MG, 3X/DAY
     Route: 048
     Dates: start: 20171009
  7. DIFFU K [Suspect]
     Active Substance: POTASSIUM CHLORIDE
     Indication: HYPOKALAEMIA
     Dosage: 3 DF (2-1-0), 2X/DAY
     Route: 048
     Dates: start: 20170824, end: 20171003
  8. COLCHICINE OPOCALCIUM [Suspect]
     Active Substance: COLCHICINE
     Dosage: 1 DF, 1X/DAY/QD
     Route: 048
     Dates: start: 20170914, end: 20170921
  9. XARELTO [Suspect]
     Active Substance: RIVAROXABAN
     Indication: ATRIAL FIBRILLATION
     Dosage: 20 MG, 1X/DAY
     Route: 048
     Dates: start: 20170824, end: 20171025
  10. XARELTO [Suspect]
     Active Substance: RIVAROXABAN
     Dosage: 1 DF, UNK
     Dates: start: 20170824, end: 20171025
  11. PANTOPRAZOLE [Suspect]
     Active Substance: PANTOPRAZOLE
     Indication: GASTROOESOPHAGEAL REFLUX DISEASE
     Dosage: 20 MG, 1X/DAY
     Route: 048
     Dates: start: 20150101, end: 20171025
  12. IRBESARTAN. [Suspect]
     Active Substance: IRBESARTAN
     Indication: HYPERTENSION
     Dosage: 300 MG, 1X/DAY
     Route: 048
     Dates: start: 20150101, end: 20171006
  13. SEROPLEX [Suspect]
     Active Substance: ESCITALOPRAM OXALATE
     Indication: DEPRESSIVE SYMPTOM
     Dosage: 1 DF, 1X/DAY
     Route: 048
     Dates: start: 20170101, end: 20170910
  14. DIAZEPAM. [Suspect]
     Active Substance: DIAZEPAM
     Indication: DEPRESSIVE SYMPTOM
     Dosage: 10 MG, 3X/DAY (IF NEEDED)
     Route: 048
     Dates: start: 20170101, end: 20170927
  15. NEFOPAM HYDROCHLORIDE [Suspect]
     Active Substance: NEFOPAM HYDROCHLORIDE
     Indication: PAIN
     Dosage: 3 UG, 1X/DAY/QD
     Route: 048
  16. METFORMIN [Suspect]
     Active Substance: METFORMIN HYDROCHLORIDE
     Indication: DIABETES MELLITUS
     Dosage: 500 MG, 2X/DAY
     Route: 048
     Dates: start: 20170824, end: 20171025
  17. FUROSEMIDE. [Suspect]
     Active Substance: FUROSEMIDE
     Dosage: 2 DF, 1X/DAY
     Route: 048
  18. IRBESARTAN. [Suspect]
     Active Substance: IRBESARTAN
     Dosage: 500 MG, 2X/DAY
     Dates: start: 2015, end: 20171006
  19. DAFALGAN [Suspect]
     Active Substance: ACETAMINOPHEN
     Dosage: 6 DF, DAILY
     Dates: start: 20171009, end: 20171009
  20. DAFALGAN [Suspect]
     Active Substance: ACETAMINOPHEN
     Dosage: 1000 MG, 3X/DAY
     Route: 048
     Dates: start: 20171019
  21. VALIUM [Suspect]
     Active Substance: DIAZEPAM
     Dosage: 3 DF, DAILY
     Dates: start: 20170101, end: 20170927
  22. METFORMIN [Suspect]
     Active Substance: METFORMIN HYDROCHLORIDE
     Dosage: 1000 MG, 1X/DAY/QD
     Route: 048
     Dates: start: 20170824, end: 20171025
  23. XARELTO [Suspect]
     Active Substance: RIVAROXABAN
     Dosage: 1 DF, 1X/DAY
     Dates: start: 20170824, end: 20170825
  24. NEFOPAM [Suspect]
     Active Substance: NEFOPAM
     Dosage: 3 DF, 3X/DAY
     Route: 048
  25. COLCHICINE OPOCALCIUM [Suspect]
     Active Substance: COLCHICINE
     Indication: GOUT
     Dosage: 1 MG, 1X/DAY
     Route: 048
     Dates: start: 20170914, end: 20170921
  26. TAVANIC [Suspect]
     Active Substance: LEVOFLOXACIN
     Indication: LUNG DISORDER
     Dosage: 250 MG, 2X/DAY
     Route: 048
     Dates: start: 20170905, end: 20170919
  27. TERBUTALINE SULFATE. [Suspect]
     Active Substance: TERBUTALINE SULFATE
     Indication: LUNG DISORDER
     Dosage: 1 DF, 1X/DAY
     Route: 055
     Dates: start: 20170914, end: 20170921
  28. VALIUM [Suspect]
     Active Substance: DIAZEPAM
     Dosage: 3 UG, 1X/DAY/QD
     Route: 048
     Dates: start: 20170101, end: 20170927
  29. ALPRAZOLAM. [Suspect]
     Active Substance: ALPRAZOLAM
     Dosage: 0.75 MG, 1X/DAY
     Dates: start: 20170928
  30. FUROSEMIDE. [Suspect]
     Active Substance: FUROSEMIDE
     Indication: HYPERTENSION
     Dosage: 30 MG, 1X/DAY
     Route: 048
     Dates: start: 20170825, end: 20171003
  31. NEFOPAM [Suspect]
     Active Substance: NEFOPAM
     Dosage: 3 DF, 1X/DAY
  32. TAVANIC [Suspect]
     Active Substance: LEVOFLOXACIN
     Dosage: 500 MG, DAILY
     Route: 048
     Dates: start: 20170905
  33. BISOPROLOL FUMARATE. [Suspect]
     Active Substance: BISOPROLOL FUMARATE
     Indication: HYPERTENSION
     Dosage: 1.25 MG, 1X/DAY
     Route: 048
     Dates: start: 20171006
  34. TERBUTALINE SULFATE. [Suspect]
     Active Substance: TERBUTALINE SULFATE
     Dosage: 1 UG, UNK
     Route: 055
  35. ALPRAZOLAM. [Suspect]
     Active Substance: ALPRAZOLAM
     Dosage: 0.75 MG, 3X/DAY
     Route: 048
     Dates: start: 20170928
  36. NEFOPAM [Suspect]
     Active Substance: NEFOPAM
     Indication: PAIN
     Dosage: 1 DF, 3X/DAY
     Route: 048
  37. DIFFU K [Suspect]
     Active Substance: POTASSIUM CHLORIDE
     Dosage: 6 DF, 1X/DAY/QD
     Route: 048
     Dates: start: 20170824, end: 20171003
  38. TAVANIC [Suspect]
     Active Substance: LEVOFLOXACIN
     Dosage: 2 DF, 1X/DAY
     Route: 048
     Dates: start: 20170905, end: 20170919
  39. VALIUM [Suspect]
     Active Substance: DIAZEPAM
     Indication: DEPRESSIVE SYMPTOM
     Dosage: 10 MG, 3X/DAY, IF NEEDED
     Route: 048
     Dates: start: 20170101, end: 20170927

REACTIONS (1)
  - Agranulocytosis [Recovered/Resolved]

NARRATIVE: CASE EVENT DATE: 20171024
